FAERS Safety Report 4674464-2 (Version None)
Quarter: 2005Q2

REPORT INFORMATION
  Report Type: 
  Country: None (occurrence: None)
  Receive Date: 20050524
  Receipt Date: 20050512
  Transmission Date: 20051028
  Serious: Yes (Hospitalization)
  Sender: FDA-Public Use
  Company Number: ZICO001217

PATIENT
  Age: 28 Year
  Sex: Female

DRUGS (7)
  1. PRIALT [Suspect]
     Indication: CANCER PAIN
     Dosage: 0.05 MCG/HR INTRATHECAL
     Route: 037
     Dates: start: 20050502, end: 20050506
  2. MORPHINE (MORPHINE HYDROCHLORIDE) [Concomitant]
  3. NYSTATIN POWER (NYSTATIN POWER) [Concomitant]
  4. VANCOMYCIN [Concomitant]
  5. LASIX [Concomitant]
  6. MORPHINE (MORPHINE HYDROCHLORIDE) [Concomitant]
  7. NYSTATIN POWER (NYSTATIN POWER) [Concomitant]

REACTIONS (4)
  - DEPRESSED LEVEL OF CONSCIOUSNESS [None]
  - SHUNT MALFUNCTION [None]
  - SOMNOLENCE [None]
  - VENTRICULO-PERITONEAL SHUNT [None]
